FAERS Safety Report 7496323-2 (Version None)
Quarter: 2011Q2

REPORT INFORMATION
  Report Type: 
  Country: None (occurrence: None)
  Receive Date: 20110513
  Receipt Date: 20110509
  Transmission Date: 20111010
  Serious: Yes (Life-Threatening, Disabling)
  Sender: FDA-Public Use
  Company Number: 2011SP021086

PATIENT
  Age: 19 Year
  Sex: Female
  Weight: 79.3795 kg

DRUGS (2)
  1. LEXAPRO [Concomitant]
  2. NUVARING [Suspect]
     Indication: CONTRACEPTION
     Dosage: QM;VAG
     Route: 067
     Dates: start: 20100901, end: 20110401

REACTIONS (5)
  - INCREASED APPETITE [None]
  - GLUCOSE TOLERANCE IMPAIRED [None]
  - FATIGUE [None]
  - WEIGHT INCREASED [None]
  - REFUSAL OF TREATMENT BY PATIENT [None]
